FAERS Safety Report 9588157 (Version 1)
Quarter: 2013Q4

REPORT INFORMATION
  Report Type: Spontaneous
  Country: US (occurrence: US)
  Receive Date: 20131003
  Receipt Date: 20131003
  Transmission Date: 20140711
  Serious: No
  Sender: FDA-Public Use
  Company Number: US-AMGEN-USASP2012068299

PATIENT
  Age: 41 Year
  Sex: Female
  Weight: 117 kg

DRUGS (12)
  1. ENBREL [Suspect]
     Indication: RHEUMATOID ARTHRITIS
     Dosage: 50 MG, QWK
     Route: 058
  2. EFFEXOR XR [Concomitant]
     Dosage: 37.5 MG, UNK
     Route: 048
  3. CLONAZEPAM [Concomitant]
     Dosage: 0.5 MG, UNK
     Route: 048
  4. ATENOLOL [Concomitant]
     Dosage: 25 MG, UNK
     Route: 048
  5. PLAQUENIL                          /00072602/ [Concomitant]
     Dosage: 200 MG, UNK
     Route: 048
  6. AZULFIDINA [Concomitant]
     Dosage: 500 MG, UNK
     Route: 048
  7. MONTELUKAST [Concomitant]
     Dosage: 10 MG, UNK
     Route: 048
  8. SUMATRIPTAN [Concomitant]
     Dosage: 25 MG, UNK
     Route: 048
  9. VICODIN [Concomitant]
     Dosage: 5-500 MG
     Route: 048
  10. GABAPENTIN [Concomitant]
     Dosage: 1000 MG, UNK
     Route: 048
  11. CALCIUM D                          /00944201/ [Concomitant]
     Dosage: UNK
     Route: 048
  12. CO Q 10                            /00517201/ [Concomitant]
     Dosage: 100 MG, UNK
     Route: 048

REACTIONS (2)
  - Diarrhoea [Unknown]
  - Nasopharyngitis [Unknown]
